FAERS Safety Report 7797909-8 (Version None)
Quarter: 2011Q4

REPORT INFORMATION
  Report Type: 
  Country: None (occurrence: None)
  Receive Date: 20111005
  Receipt Date: 20110928
  Transmission Date: 20120403
  Serious: Yes (Death, Hospitalization, Other)
  Sender: FDA-Public Use
  Company Number: US-ELI_LILLY_AND_COMPANY-US201107005956

PATIENT
  Sex: Male
  Weight: 85.261 kg

DRUGS (12)
  1. ALIMTA [Suspect]
     Indication: NON-SMALL CELL LUNG CANCER METASTATIC
     Dosage: 500 MG/M2, EVERY 3 WEEKS
     Route: 042
     Dates: start: 20101028, end: 20101028
  2. FOLIC ACID [Concomitant]
     Dosage: 1 MG, UNKNOWN
     Route: 048
     Dates: start: 20101021, end: 20101028
  3. CORTICOSTEROID NOS [Concomitant]
     Dosage: 4 DF, BID
     Route: 048
     Dates: start: 20101027, end: 20101029
  4. MORPHINE [Concomitant]
  5. SOMA [Concomitant]
  6. DIAZEPAM [Concomitant]
  7. METOPROLOL TARTRATE [Concomitant]
  8. VITAMIN B-12 [Concomitant]
     Dosage: 1000 MG, UNKNOWN
     Route: 030
     Dates: start: 20101021, end: 20101028
  9. PHENERGAN HCL [Concomitant]
  10. LACTULOSE [Concomitant]
  11. CISPLATIN [Concomitant]
     Indication: NON-SMALL CELL LUNG CANCER
     Dosage: 75 MG/M2, UNK
     Route: 042
  12. HYDROCODIN [Concomitant]

REACTIONS (3)
  - MULTI-ORGAN FAILURE [None]
  - FEBRILE NEUTROPENIA [None]
  - RENAL FAILURE [None]
